FAERS Safety Report 6519448-4 (Version None)
Quarter: 2009Q4

REPORT INFORMATION
  Report Type: 
  Country: None (occurrence: None)
  Receive Date: 20091228
  Receipt Date: 20091215
  Transmission Date: 20100525
  Serious: Yes (Hospitalization, Other)
  Sender: FDA-Public Use
  Company Number: FR-CELGENEUS-056-21880-09100372

PATIENT
  Sex: Male
  Weight: 82 kg

DRUGS (6)
  1. REVLIMID [Suspect]
     Route: 048
     Dates: start: 20090921, end: 20090926
  2. DEXAMETHASONE [Concomitant]
     Route: 048
     Dates: start: 20090921
  3. BACTRIM [Concomitant]
     Indication: PROPHYLAXIS
     Dates: start: 20090911
  4. ARANESP [Concomitant]
     Indication: ANAEMIA OF MALIGNANT DISEASE
     Route: 065
     Dates: start: 20090911
  5. NEORECORMON [Concomitant]
     Indication: DRUG USE FOR UNKNOWN INDICATION
     Dates: end: 20090910
  6. PHOSPHAGEL [Concomitant]
     Indication: DRUG USE FOR UNKNOWN INDICATION
     Route: 065
     Dates: start: 20090911

REACTIONS (4)
  - AGEUSIA [None]
  - INFLUENZA LIKE ILLNESS [None]
  - LIGHT CHAIN ANALYSIS INCREASED [None]
  - RENAL FAILURE [None]
